FAERS Safety Report 13458677 (Version 1)
Quarter: 2017Q2

REPORT INFORMATION
  Report Type: Other
  Country: CA (occurrence: CA)
  Receive Date: 20170419
  Receipt Date: 20170419
  Transmission Date: 20170830
  Serious: Yes (Hospitalization, Other)
  Sender: FDA-Public Use
  Company Number: CA-APOTEX-2017AP010091

PATIENT
  Sex: Female

DRUGS (44)
  1. APO-TRAMADOL [Suspect]
     Active Substance: TRAMADOL
     Indication: PRODUCT USED FOR UNKNOWN INDICATION
     Dosage: UNK
     Route: 065
  2. ASA 81 [Suspect]
     Active Substance: ASPIRIN
     Indication: MOBILITY DECREASED
  3. APO-DICLO RAPIDE [Suspect]
     Active Substance: DICLOFENAC POTASSIUM
     Indication: MOBILITY DECREASED
  4. ARAVA [Suspect]
     Active Substance: LEFLUNOMIDE
     Indication: PAIN
  5. METHOTREXATE. [Suspect]
     Active Substance: METHOTREXATE
     Indication: JOINT STIFFNESS
  6. NAPROSYN [Suspect]
     Active Substance: NAPROXEN
     Indication: MOBILITY DECREASED
     Dosage: UNK
     Route: 065
  7. NAPROSYN [Suspect]
     Active Substance: NAPROXEN
     Indication: JOINT STIFFNESS
  8. MOTRIN [Suspect]
     Active Substance: IBUPROFEN
     Indication: MOBILITY DECREASED
  9. HUMIRA [Suspect]
     Active Substance: ADALIMUMAB
     Indication: RHEUMATOID ARTHRITIS
     Dosage: UNK
     Route: 065
  10. ENBREL [Suspect]
     Active Substance: ETANERCEPT
     Indication: PAIN
  11. ARAVA [Suspect]
     Active Substance: LEFLUNOMIDE
     Indication: RHEUMATOID ARTHRITIS
     Dosage: UNK
     Route: 065
  12. ARAVA [Suspect]
     Active Substance: LEFLUNOMIDE
     Indication: MOBILITY DECREASED
  13. VOLTAREN [Suspect]
     Active Substance: DICLOFENAC SODIUM
     Indication: PAIN
  14. ASA 81 [Suspect]
     Active Substance: ASPIRIN
     Indication: PAIN
  15. APO-DICLO RAPIDE [Suspect]
     Active Substance: DICLOFENAC POTASSIUM
     Indication: PAIN
  16. MOTRIN [Suspect]
     Active Substance: IBUPROFEN
     Indication: PAIN
  17. HUMIRA [Suspect]
     Active Substance: ADALIMUMAB
     Indication: PAIN
  18. VOLTAREN [Suspect]
     Active Substance: DICLOFENAC SODIUM
     Indication: RHEUMATOID ARTHRITIS
     Dosage: UNK
     Route: 065
  19. APO-DICLO RAPIDE [Suspect]
     Active Substance: DICLOFENAC POTASSIUM
     Indication: RHEUMATOID ARTHRITIS
     Dosage: UNK
     Route: 065
  20. PLAQUENIL                          /00072602/ [Suspect]
     Active Substance: HYDROXYCHLOROQUINE DIPHOSPHATE
     Indication: RHEUMATOID ARTHRITIS
     Dosage: UNK
     Route: 065
  21. NAPROSYN [Suspect]
     Active Substance: NAPROXEN
     Indication: RHEUMATOID ARTHRITIS
  22. ASA 81 [Suspect]
     Active Substance: ASPIRIN
     Indication: RHEUMATOID ARTHRITIS
     Dosage: UNK
     Route: 065
  23. METHOTREXATE. [Suspect]
     Active Substance: METHOTREXATE
     Indication: MOBILITY DECREASED
  24. HUMIRA [Suspect]
     Active Substance: ADALIMUMAB
     Indication: JOINT STIFFNESS
  25. ENBREL [Suspect]
     Active Substance: ETANERCEPT
     Indication: MOBILITY DECREASED
  26. VOLTAREN [Suspect]
     Active Substance: DICLOFENAC SODIUM
     Indication: JOINT STIFFNESS
  27. VOLTAREN [Suspect]
     Active Substance: DICLOFENAC SODIUM
     Indication: MOBILITY DECREASED
  28. ASA 81 [Suspect]
     Active Substance: ASPIRIN
     Indication: JOINT STIFFNESS
  29. APO-DICLO RAPIDE [Suspect]
     Active Substance: DICLOFENAC POTASSIUM
     Indication: JOINT STIFFNESS
  30. MOTRIN [Suspect]
     Active Substance: IBUPROFEN
     Indication: JOINT STIFFNESS
  31. ENBREL [Suspect]
     Active Substance: ETANERCEPT
     Indication: RHEUMATOID ARTHRITIS
     Dosage: UNK
     Route: 065
  32. METHOTREXATE. [Suspect]
     Active Substance: METHOTREXATE
     Indication: PAIN
  33. NAPROSYN [Suspect]
     Active Substance: NAPROXEN
     Indication: PAIN
  34. MOTRIN [Suspect]
     Active Substance: IBUPROFEN
     Indication: RHEUMATOID ARTHRITIS
     Dosage: UNK
     Route: 065
  35. GOLD [Suspect]
     Active Substance: GOLD
     Indication: RHEUMATOID ARTHRITIS
     Dosage: UNK
     Route: 065
  36. GOLD [Suspect]
     Active Substance: GOLD
     Indication: PAIN
  37. GOLD [Suspect]
     Active Substance: GOLD
     Indication: MOBILITY DECREASED
  38. ARAVA [Suspect]
     Active Substance: LEFLUNOMIDE
     Indication: JOINT STIFFNESS
  39. METHOTREXATE. [Suspect]
     Active Substance: METHOTREXATE
     Indication: RHEUMATOID ARTHRITIS
     Dosage: UNK
     Route: 065
  40. PLAQUENIL                          /00072602/ [Suspect]
     Active Substance: HYDROXYCHLOROQUINE DIPHOSPHATE
     Indication: PAIN
  41. PLAQUENIL                          /00072602/ [Suspect]
     Active Substance: HYDROXYCHLOROQUINE DIPHOSPHATE
     Indication: JOINT STIFFNESS
  42. HUMIRA [Suspect]
     Active Substance: ADALIMUMAB
     Indication: MOBILITY DECREASED
  43. GOLD [Suspect]
     Active Substance: GOLD
     Indication: JOINT STIFFNESS
  44. ENBREL [Suspect]
     Active Substance: ETANERCEPT
     Indication: JOINT STIFFNESS

REACTIONS (13)
  - Vomiting [Unknown]
  - Ear infection [Unknown]
  - Off label use [Unknown]
  - Deafness [Unknown]
  - Eating disorder [Unknown]
  - Decreased appetite [Unknown]
  - Abdominal discomfort [Unknown]
  - Nausea [Unknown]
  - Weight decreased [Unknown]
  - Dizziness [Unknown]
  - Abdominal pain upper [Unknown]
  - Pharyngitis [Unknown]
  - Headache [Unknown]
